FAERS Safety Report 14402102 (Version 3)
Quarter: 2018Q1

REPORT INFORMATION
  Report Type: Report from Study
  Country: DK (occurrence: DK)
  Receive Date: 20180117
  Receipt Date: 20180208
  Transmission Date: 20180509
  Serious: Yes (Hospitalization)
  Sender: FDA-Public Use
  Company Number: DK-TESARO, INC.-DK-2017TSO04186

PATIENT
  Sex: Female
  Weight: 54.9 kg

DRUGS (5)
  1. ALENDRONATE [Concomitant]
     Active Substance: ALENDRONATE SODIUM
     Indication: OSTEOPOROSIS
     Dosage: 70 MG, QWEEK
     Route: 048
     Dates: start: 20160919
  2. ATORVASTATIN [Concomitant]
     Active Substance: ATORVASTATIN
     Indication: BLOOD CHOLESTEROL INCREASED
     Dosage: 80 MG, QD
     Route: 048
     Dates: start: 20160614
  3. BEVACIZUMAB. [Suspect]
     Active Substance: BEVACIZUMAB
     Indication: NEOPLASM MALIGNANT
     Dosage: 900 MG, Q3WEEKS
     Route: 042
     Dates: start: 20170822, end: 20171115
  4. NIRAPARIB [Suspect]
     Active Substance: NIRAPARIB
     Indication: NEOPLASM MALIGNANT
     Dosage: 300 MG, QD
     Route: 048
     Dates: start: 20170822, end: 20171126
  5. ACETYLSALICYLIC ACID [Concomitant]
     Active Substance: ASPIRIN
     Indication: ANTICOAGULANT THERAPY
     Dosage: 75 MG, QD
     Route: 048
     Dates: start: 20160615

REACTIONS (1)
  - Syncope [Recovered/Resolved]

NARRATIVE: CASE EVENT DATE: 20171126
